FAERS Safety Report 9056856 (Version 1)
Quarter: 2013Q1

REPORT INFORMATION
  Report Type: Report from Study
  Country: JP (occurrence: JP)
  Receive Date: 20130201
  Receipt Date: 20130201
  Transmission Date: 20140127
  Serious: Yes (Other)
  Sender: FDA-Public Use
  Company Number: JP-GLAXOSMITHKLINE-B0860452A

PATIENT
  Age: 65 None
  Sex: Female
  Weight: 52 kg

DRUGS (9)
  1. TYKERB [Suspect]
     Indication: BREAST CANCER
     Route: 048
     Dates: start: 20090701, end: 20091027
  2. TYKERB [Suspect]
     Indication: BREAST CANCER
     Route: 048
     Dates: start: 20091028, end: 20100113
  3. TYKERB [Suspect]
     Indication: BREAST CANCER
     Route: 048
     Dates: start: 20100114
  4. XELODA [Suspect]
     Route: 048
     Dates: start: 20090701, end: 20090811
  5. XELODA [Suspect]
     Route: 048
     Dates: start: 20090812, end: 20090924
  6. XELODA [Suspect]
     Route: 048
     Dates: start: 20091104, end: 20091129
  7. ZOMETA [Concomitant]
     Indication: METASTASES TO BONE
     Route: 042
     Dates: start: 20090701
  8. HYSRON-H [Concomitant]
     Indication: BREAST CANCER
     Route: 048
     Dates: start: 20100106
  9. UNKNOWN DRUG [Concomitant]
     Indication: BREAST CANCER
     Dates: start: 20100113

REACTIONS (6)
  - Hydrocephalus [Recovering/Resolving]
  - Palmar-plantar erythrodysaesthesia syndrome [Recovering/Resolving]
  - Stomatitis [Recovered/Resolved]
  - Dry skin [Recovered/Resolved]
  - Stomatitis [Recovering/Resolving]
  - Diarrhoea [Recovered/Resolved]
